FAERS Safety Report 5233963-5 (Version None)
Quarter: 2007Q1

REPORT INFORMATION
  Report Type: 
  Country: None (occurrence: None)
  Receive Date: 20070206
  Receipt Date: 20070122
  Transmission Date: 20070707
  Serious: No
  Sender: FDA-Public Use
  Company Number: 2007-153400-NL

PATIENT
  Age: 36 Year
  Sex: 0

DRUGS (2)
  1. DANAPAROID [Suspect]
     Indication: CARDIOPULMONARY BYPASS
  2. HEPARIN [Concomitant]

REACTIONS (4)
  - ANTICOAGULATION DRUG LEVEL BELOW THERAPEUTIC [None]
  - CARDIOPULMONARY BYPASS [None]
  - PROCEDURAL COMPLICATION [None]
  - THROMBOSIS [None]
